FAERS Safety Report 23511325 (Version 2)
Quarter: 2024Q1

REPORT INFORMATION
  Report Type: Spontaneous
  Country: US (occurrence: US)
  Receive Date: 20240212
  Receipt Date: 20240227
  Transmission Date: 20240409
  Serious: Yes (Other)
  Sender: FDA-Public Use
  Company Number: US-JNJFOC-20240211773

PATIENT
  Age: 50 Year
  Sex: Female

DRUGS (3)
  1. VENTAVIS [Suspect]
     Active Substance: ILOPROST
     Indication: Product used for unknown indication
     Route: 055
  2. TREPROSTINIL SODIUM [Suspect]
     Active Substance: TREPROSTINIL SODIUM
     Indication: Pulmonary arterial hypertension
     Route: 055
     Dates: start: 202308
  3. AMBRISENTAN [Concomitant]
     Active Substance: AMBRISENTAN

REACTIONS (6)
  - Cardiac dysfunction [Not Recovered/Not Resolved]
  - Pulmonary arterial hypertension [Recovering/Resolving]
  - Pericardial effusion [Not Recovered/Not Resolved]
  - Cough [Not Recovered/Not Resolved]
  - Inappropriate schedule of product administration [Unknown]
  - Product communication issue [Unknown]

NARRATIVE: CASE EVENT DATE: 20240109
